FAERS Safety Report 5795112-4 (Version None)
Quarter: 2008Q2

REPORT INFORMATION
  Report Type: 
  Country: None (occurrence: None)
  Receive Date: 20080630
  Receipt Date: 20080415
  Transmission Date: 20081010
  Serious: No
  Sender: FDA-Public Use
  Company Number: US-BRISTOL-MYERS SQUIBB COMPANY-14152128

PATIENT
  Age: 64 Year
  Sex: Female
  Weight: 91 kg

DRUGS (7)
  1. ORENCIA [Suspect]
     Indication: RHEUMATOID ARTHRITIS
  2. PREDNISONE [Concomitant]
  3. LIPITOR [Concomitant]
  4. FUROSEMIDE [Concomitant]
  5. METFORMIN [Concomitant]
  6. INSULIN [Concomitant]
  7. VICODIN [Concomitant]

REACTIONS (1)
  - BLOOD GLUCOSE INCREASED [None]
